FAERS Safety Report 8966835 (Version 1)
Quarter: 2012Q4

REPORT INFORMATION
  Report Type: 
  Country: US (occurrence: US)
  Receive Date: 20121217
  Receipt Date: 20121217
  Transmission Date: 20130627
  Serious: Yes (Other)
  Sender: FDA-Public Use
  Company Number: US-PFIZER INC-2012316663

PATIENT
  Sex: Male

DRUGS (3)
  1. MORPHINE SULFATE [Suspect]
     Dosage: 60 mg, daily
  2. OXYCODONE HYDROCHLORIDE [Suspect]
     Dosage: 180 mg daily (6 tablets of 30 mg daily)
  3. OXYCONTIN [Suspect]
     Dosage: 160 mg (2 tablets of 80 mg daily)

REACTIONS (7)
  - Suicidal ideation [Unknown]
  - Sciatica [Not Recovered/Not Resolved]
  - Diarrhoea [Unknown]
  - Muscle spasms [Unknown]
  - Dizziness [Unknown]
  - Decreased appetite [Unknown]
  - Pain [Unknown]
